FAERS Safety Report 8294798-2 (Version None)
Quarter: 2012Q2

REPORT INFORMATION
  Report Type: 
  Country: None (occurrence: None)
  Receive Date: 20120418
  Receipt Date: 20120416
  Transmission Date: 20120825
  Serious: Yes (Death, Other)
  Sender: FDA-Public Use
  Company Number: PHHY2012BR024392

PATIENT
  Sex: Female

DRUGS (2)
  1. DIOVAN [Suspect]
     Indication: HYPERTENSION
     Dosage: 80 MG, 160 MG A DAY
  2. DIOVAN [Suspect]
     Dosage: 160 MG, UNK

REACTIONS (4)
  - DEMENTIA [None]
  - DEMENTIA ALZHEIMER'S TYPE [None]
  - RESPIRATORY TRACT INFECTION [None]
  - DEATH [None]
